FAERS Safety Report 5314290-4 (Version None)
Quarter: 2007Q2

REPORT INFORMATION
  Report Type: 
  Country: None (occurrence: None)
  Receive Date: 20070425
  Receipt Date: 20070419
  Transmission Date: 20071010
  Serious: No
  Sender: FDA-Public Use
  Company Number: 20073586

PATIENT
  Sex: Male

DRUGS (5)
  1. LIORESAL [Suspect]
     Indication: MUSCLE SPASTICITY
     Dosage: 240 MCG, DAILY, INTRATHECAL
     Route: 037
  2. ORAL BACLOFEN [Concomitant]
  3. GABAPENTIN [Concomitant]
  4. EFFEXOR [Concomitant]
  5. DURAGESIC-100 [Concomitant]

REACTIONS (5)
  - ABNORMAL DREAMS [None]
  - DELUSION [None]
  - HALLUCINATION [None]
  - PARANOIA [None]
  - URINARY TRACT INFECTION [None]
